FAERS Safety Report 19190254 (Version 2)
Quarter: 2021Q3

REPORT INFORMATION
  Report Type: Spontaneous
  Country: JP (occurrence: JP)
  Receive Date: 20210428
  Receipt Date: 20210715
  Transmission Date: 20211014
  Serious: Yes (Other)
  Sender: FDA-Public Use
  Company Number: JP-PFIZER INC-2020456014

PATIENT
  Age: 78 Year
  Sex: Male

DRUGS (3)
  1. INLYTA [Suspect]
     Active Substance: AXITINIB
     Dosage: 6 MG, CYCLIC
  2. BAVENCIO [Suspect]
     Active Substance: AVELUMAB
     Dosage: UNK, CYCLIC
     Dates: start: 20201104
  3. INLYTA [Suspect]
     Active Substance: AXITINIB
     Dosage: 10 MG, CYCLIC
     Dates: start: 20201104

REACTIONS (9)
  - Blood bilirubin increased [Recovered/Resolved]
  - Decreased appetite [Unknown]
  - Diarrhoea [Unknown]
  - Hypothyroidism [Unknown]
  - Cholecystitis [Unknown]
  - Thyroid hormones increased [Unknown]
  - Palmar-plantar erythrodysaesthesia syndrome [Unknown]
  - Hepatic function abnormal [Recovered/Resolved]
  - Thyroid disorder [Unknown]

NARRATIVE: CASE EVENT DATE: 202011
